FAERS Safety Report 13849919 (Version 6)
Quarter: 2019Q2

REPORT INFORMATION
  Report Type: Spontaneous
  Country: US (occurrence: US)
  Receive Date: 20170809
  Receipt Date: 20190606
  Transmission Date: 20190711
  Serious: Yes (Other)
  Sender: FDA-Public Use
  Company Number: US-BRISTOL-MYERS SQUIBB COMPANY-BMS-2017-071426

PATIENT
  Age: 72 Year
  Sex: Male
  Weight: 80.73 kg

DRUGS (4)
  1. SPRYCEL [Suspect]
     Active Substance: DASATINIB
     Indication: CHRONIC MYELOID LEUKAEMIA
     Dosage: 100 MG, QD
     Route: 048
     Dates: start: 201603
  2. FISH OIL [Concomitant]
     Active Substance: FISH OIL
     Indication: PRODUCT USED FOR UNKNOWN INDICATION
     Route: 065
  3. SPRYCEL [Suspect]
     Active Substance: DASATINIB
     Indication: PRODUCT USED FOR UNKNOWN INDICATION
     Dosage: 50 MG, QD
     Route: 048
  4. MULTIVITAMINS                      /00116001/ [Concomitant]
     Active Substance: VITAMINS
     Indication: PRODUCT USED FOR UNKNOWN INDICATION
     Route: 065

REACTIONS (11)
  - Dizziness [Unknown]
  - Pneumonia [Recovered/Resolved]
  - Prostatomegaly [Unknown]
  - Haemoglobin decreased [Unknown]
  - Pharyngitis [Unknown]
  - Upper-airway cough syndrome [Unknown]
  - Pollakiuria [Unknown]
  - Red blood cell count decreased [Unknown]
  - Pleural effusion [Unknown]
  - Blood pressure increased [Unknown]
  - Dyspepsia [Unknown]

NARRATIVE: CASE EVENT DATE: 201712
